FAERS Safety Report 8902900 (Version 1)
Quarter: 2012Q4

REPORT INFORMATION
  Report Type: 
  Country: US (occurrence: US)
  Receive Date: 20121112
  Receipt Date: 20121112
  Transmission Date: 20130627
  Serious: No
  Sender: FDA-Public Use
  Company Number: US-PFIZER INC-2012280653

PATIENT
  Age: 52 Year
  Sex: Male
  Weight: 122 kg

DRUGS (4)
  1. LYRICA [Suspect]
     Indication: NERVE PAIN
     Dosage: 75 mg, daily
     Dates: start: 201209, end: 2012
  2. LYRICA [Suspect]
     Indication: CHRONIC PAIN
     Dosage: 75 mg, 2x/day
     Dates: start: 2012, end: 2012
  3. LYRICA [Suspect]
     Dosage: 150 mg, 2x/day
     Dates: start: 2012, end: 20121107
  4. MOBIC [Concomitant]
     Indication: NERVE PAIN
     Dosage: 15 mg, daily

REACTIONS (2)
  - Musculoskeletal stiffness [Unknown]
  - Oedema peripheral [Unknown]
